FAERS Safety Report 5054405-9 (Version None)
Quarter: 2006Q2

REPORT INFORMATION
  Report Type: 
  Country: None (occurrence: None)
  Receive Date: 20060616
  Receipt Date: 20060330
  Transmission Date: 20061013
  Serious: Yes (Other)
  Sender: FDA-Public Use
  Company Number: 221839

PATIENT
  Age: 60 Year
  Sex: Female

DRUGS (15)
  1. AVASTIN [Suspect]
     Indication: METASTATIC RENAL CELL CARCINOMA
     Dosage: 10MG/KG, INTRAVENOUS
     Route: 042
     Dates: start: 20040601, end: 20060315
  2. MS CONTIN [Concomitant]
  3. LASIX [Concomitant]
  4. ALTACE [Concomitant]
  5. ACTIQ [Concomitant]
  6. PREMARIN [Concomitant]
  7. PRILOSEC [Concomitant]
  8. ZOFRAN [Concomitant]
  9. ANZEMET [Concomitant]
  10. PROVIGIL [Concomitant]
  11. AMBIEN [Concomitant]
  12. ATARAX [Concomitant]
  13. BENDARYL (DIPHENYDRAMINE HYDROCHLORIDE) [Concomitant]
  14. MOM (MILK OF MAGNESIA) [Concomitant]
  15. EFFEXOR XR [Concomitant]

REACTIONS (3)
  - HYPERTENSION [None]
  - HYPONATRAEMIA [None]
  - PROTEINURIA [None]
